FAERS Safety Report 10264114 (Version 3)
Quarter: 2014Q4

REPORT INFORMATION
  Report Type: Spontaneous
  Country: US (occurrence: US)
  Receive Date: 20140627
  Receipt Date: 20141204
  Transmission Date: 20150528
  Serious: Yes (Hospitalization)
  Sender: FDA-Public Use
  Company Number: US-ROCHE-1423187

PATIENT
  Age: 5 Year
  Sex: Male

DRUGS (1)
  1. RITUXIMAB [Suspect]
     Active Substance: RITUXIMAB
     Indication: FACTOR VIII INHIBITION
     Route: 042

REACTIONS (5)
  - Haemophilia [Unknown]
  - Anaphylactic reaction [Recovered/Resolved]
  - Haemorrhage [Unknown]
  - Drug hypersensitivity [Not Recovered/Not Resolved]
  - Human antichimeric antibody test [Unknown]

NARRATIVE: CASE EVENT DATE: 201312
